FAERS Safety Report 9169296 (Version 1)
Quarter: 2013Q1

REPORT INFORMATION
  Report Type: Report from Study
  Country: AU (occurrence: AU)
  Receive Date: 20130318
  Receipt Date: 20130318
  Transmission Date: 20140127
  Serious: Yes (Other)
  Sender: FDA-Public Use
  Company Number: AU-ROCHE-1202519

PATIENT
  Sex: Female

DRUGS (1)
  1. LUCENTIS [Suspect]
     Indication: AGE-RELATED MACULAR DEGENERATION
     Route: 050
     Dates: start: 201209

REACTIONS (7)
  - Glaucoma [Unknown]
  - Lacrimation increased [Recovered/Resolved]
  - Eye pain [Unknown]
  - Visual impairment [Unknown]
  - Pain in extremity [Unknown]
  - Intraocular pressure test [Unknown]
  - Asthenopia [Unknown]
